FAERS Safety Report 9637752 (Version 1)
Quarter: 2013Q4

REPORT INFORMATION
  Report Type: Spontaneous
  Country: FR (occurrence: None)
  Receive Date: 20131018
  Receipt Date: 20131018
  Transmission Date: 20140711
  Serious: Yes (Hospitalization)
  Sender: FDA-Public Use
  Company Number: 1910099

PATIENT
  Age: 61 Year
  Sex: Female

DRUGS (3)
  1. CARBOPLATIN [Suspect]
     Indication: PRODUCT USED FOR UNKNOWN INDICATION
     Route: 042
     Dates: start: 20110809, end: 20110809
  2. POLARAMINE [Concomitant]
  3. PACLITAXEL EBEWE [Concomitant]

REACTIONS (6)
  - Infusion related reaction [None]
  - Oropharyngeal pain [None]
  - Hyperhidrosis [None]
  - Nausea [None]
  - Erythema [None]
  - Sensation of pressure [None]
